FAERS Safety Report 23851738 (Version 2)
Quarter: 2024Q2

REPORT INFORMATION
  Report Type: Spontaneous
  Country: CN (occurrence: CN)
  Receive Date: 20240514
  Receipt Date: 20240517
  Transmission Date: 20240716
  Serious: Yes (Hospitalization)
  Sender: FDA-Public Use
  Company Number: CN-GLAXOSMITHKLINE-CN2024APC057626

PATIENT

DRUGS (3)
  1. SERETIDE [Suspect]
     Active Substance: FLUTICASONE PROPIONATE\SALMETEROL XINAFOATE
     Indication: Asthma
     Dosage: UNK, 50/250?G 60 DOSES, TREATMENT START DATE 2012
     Route: 055
     Dates: start: 2012
  2. TRIAMCINOLONE ACETONIDE [Concomitant]
     Active Substance: TRIAMCINOLONE ACETONIDE
     Indication: Product used for unknown indication
     Dosage: UNK,INJECTION/INJECTION SITE UNKNOWN
  3. ALBUTEROL SULFATE [Concomitant]
     Active Substance: ALBUTEROL SULFATE
     Indication: Product used for unknown indication
     Dosage: UNK,START DATE ONE YEAR AGO
     Route: 055

REACTIONS (6)
  - Nasopharyngitis [Unknown]
  - Cough [Unknown]
  - Dyspnoea [Unknown]
  - Vision blurred [Unknown]
  - Visual impairment [Not Recovered/Not Resolved]
  - Condition aggravated [Unknown]
